FAERS Safety Report 18277887 (Version 1)
Quarter: 2020Q3

REPORT INFORMATION
  Report Type: Spontaneous
  Country: DE (occurrence: DE)
  Receive Date: 20200917
  Receipt Date: 20200917
  Transmission Date: 20201103
  Serious: Yes (Hospitalization)
  Sender: FDA-Public Use
  Company Number: DE-009507513-2009DEU004483

PATIENT
  Age: 67 Year
  Sex: Male
  Weight: 92 kg

DRUGS (1)
  1. SITAGLIPTIN PHOSPHATE (+) METFORMIN HYDROCHLORIDE [Suspect]
     Active Substance: METFORMIN HYDROCHLORIDE\SITAGLIPTIN PHOSPHATE
     Dosage: 1000|50 MG, 1?0?1?0, TABLETS
     Route: 048

REACTIONS (6)
  - Constipation [Recovering/Resolving]
  - Abdominal pain upper [Recovering/Resolving]
  - Abdominal pain [Recovering/Resolving]
  - General physical health deterioration [Recovering/Resolving]
  - Nausea [Recovering/Resolving]
  - Abdominal distension [Recovering/Resolving]
